FAERS Safety Report 26022187 (Version 1)
Quarter: 2025Q4

REPORT INFORMATION
  Report Type: Spontaneous
  Country: US (occurrence: US)
  Receive Date: 20251110
  Receipt Date: 20251110
  Transmission Date: 20260117
  Serious: Yes (Other)
  Sender: BRISTOL-MYERS SQUIBB COMPANY
  Company Number: US-BRISTOL-MYERS SQUIBB COMPANY-2025-150748

PATIENT
  Age: 47 Year
  Sex: Male

DRUGS (1)
  1. COBENFY [Suspect]
     Active Substance: TROSPIUM CHLORIDE\XANOMELINE
     Indication: Product used for unknown indication
     Dosage: DOSE AND STRENGTH: 50MG/20MG
     Route: 048

REACTIONS (6)
  - Hallucination [Unknown]
  - Depression [Unknown]
  - Thinking abnormal [Unknown]
  - Paranoia [Unknown]
  - Urinary retention [Unknown]
  - Gastritis [Unknown]

NARRATIVE: CASE EVENT DATE: 20251022
